FAERS Safety Report 9168591 (Version 1)
Quarter: 2013Q1

REPORT INFORMATION
  Report Type: Spontaneous
  Country: US (occurrence: US)
  Receive Date: 20130318
  Receipt Date: 20130318
  Transmission Date: 20140127
  Serious: No
  Sender: FDA-Public Use
  Company Number: US-009507513-1303USA004085

PATIENT
  Sex: Female

DRUGS (5)
  1. BOCEPREVIR [Suspect]
     Indication: CHRONIC HEPATITIS C
     Dosage: UNK, TID
     Dates: start: 20111105, end: 20120713
  2. PEGINTERFERON ALFA-2A [Suspect]
     Indication: CHRONIC HEPATITIS C
     Dosage: 180 MICROGRAM, QW
     Dates: start: 20111007, end: 20120713
  3. RIBAVIRIN [Suspect]
     Indication: CHRONIC HEPATITIS C
     Dosage: 1200 MG, QD
     Dates: start: 20111007, end: 20120713
  4. RIBAVIRIN [Suspect]
     Dosage: 800 MG, QD
  5. RIBAVIRIN [Suspect]
     Dosage: 600 MG, QD
     Dates: start: 20111214

REACTIONS (13)
  - White blood cell count decreased [Unknown]
  - Haemoglobin decreased [Unknown]
  - Sensory disturbance [Unknown]
  - Tearfulness [Unknown]
  - Apathy [Unknown]
  - Night sweats [Unknown]
  - Nausea [Unknown]
  - Decreased appetite [Unknown]
  - Anaemia [Recovered/Resolved]
  - Back pain [Unknown]
  - Fatigue [Recovered/Resolved]
  - Pain [Recovered/Resolved]
  - Pain in extremity [Unknown]
